FAERS Safety Report 6730590-5 (Version None)
Quarter: 2010Q2

REPORT INFORMATION
  Report Type: 
  Country: None (occurrence: None)
  Receive Date: 20100514
  Receipt Date: 20100506
  Transmission Date: 20101027
  Serious: Yes (Hospitalization)
  Sender: FDA-Public Use
  Company Number: 2010EU001846

PATIENT
  Sex: Female
  Weight: 105 kg

DRUGS (6)
  1. SOLIFENACIN SUCCINATE (VESICARE) [Suspect]
     Indication: HYPERTONIC BLADDER
     Dosage: 5 MG, UID/QD, ORAL
     Route: 048
     Dates: start: 20100128, end: 20100226
  2. DIGITOXIN [Concomitant]
  3. BISOPROLOL FUMARATE [Concomitant]
  4. TRANSTEC (BUPRENORPHINE) [Concomitant]
  5. PANTOPRAZOLE SODIUM [Concomitant]
  6. CANDESARTAN CILEXETIL [Concomitant]

REACTIONS (1)
  - CYSTOPEXY [None]
